FAERS Safety Report 4348291-X (Version None)
Quarter: 2004Q1

REPORT INFORMATION
  Report Type: 
  Country: None (occurrence: None)
  Receive Date: 20040325
  Receipt Date: 20031229
  Transmission Date: 20041129
  Serious: No
  Sender: FDA-Public Use
  Company Number: USA031151450

PATIENT
  Age: 80 Year
  Sex: Female

DRUGS (9)
  1. FORTEO [Suspect]
     Dates: start: 20031030
  2. TOPROL-XL [Concomitant]
  3. CELEBREX [Concomitant]
  4. PRILOSEC [Concomitant]
  5. VITAMIN E [Concomitant]
  6. CALCIUM [Concomitant]
  7. BORIC ACID [Concomitant]
  8. ALEVE [Concomitant]
  9. ALPRAZOLAM [Concomitant]

REACTIONS (5)
  - DIZZINESS [None]
  - ENDODONTIC PROCEDURE [None]
  - ILL-DEFINED DISORDER [None]
  - TOOTH EXTRACTION [None]
  - TOOTH REPAIR [None]
